FAERS Safety Report 4896450-X (Version None)
Quarter: 2006Q1

REPORT INFORMATION
  Report Type: 
  Country: None (occurrence: None)
  Receive Date: 20060126
  Receipt Date: 20060109
  Transmission Date: 20060701
  Serious: Yes (Life-Threatening, Hospitalization)
  Sender: FDA-Public Use
  Company Number: S99-USA-00007-01

PATIENT
  Age: 30 Year
  Sex: Female

DRUGS (1)
  1. CERVIDIL [Suspect]
     Indication: LABOUR INDUCTION
     Dosage: 10 MG ONCE VG
     Route: 067
     Dates: start: 19990103, end: 19990103

REACTIONS (7)
  - CAESAREAN SECTION [None]
  - DISSEMINATED INTRAVASCULAR COAGULATION [None]
  - DRUG EXPOSURE DURING PREGNANCY [None]
  - DYSPNOEA [None]
  - LETHARGY [None]
  - OBSTETRICAL PULMONARY EMBOLISM [None]
  - PREMATURE SEPARATION OF PLACENTA [None]
